FAERS Safety Report 15601552 (Version 8)
Quarter: 2022Q2

REPORT INFORMATION
  Report Type: Spontaneous
  Country: US (occurrence: US)
  Receive Date: 20181109
  Receipt Date: 20220525
  Transmission Date: 20220721
  Serious: Yes (Death, Life-Threatening, Other)
  Sender: FDA-Public Use
  Company Number: PHEH2018US047234

PATIENT
  Age: 2 Year
  Sex: Male
  Weight: 10 kg

DRUGS (2)
  1. KYMRIAH [Suspect]
     Active Substance: TISAGENLECLEUCEL
     Indication: Acute lymphocytic leukaemia
     Dosage: 10 ML, ONCE/SINGLE
     Route: 042
     Dates: start: 20180904, end: 20180904
  2. KYMRIAH [Suspect]
     Active Substance: TISAGENLECLEUCEL
     Dosage: ONCE/SINGLE
     Route: 042
     Dates: start: 20180919, end: 20180919

REACTIONS (5)
  - Venoocclusive disease [Fatal]
  - Acute respiratory failure [Fatal]
  - Acute lymphocytic leukaemia recurrent [Not Recovered/Not Resolved]
  - Drug ineffective [Unknown]
  - Minimal residual disease [Unknown]

NARRATIVE: CASE EVENT DATE: 20181017
